FAERS Safety Report 8896492 (Version 2)
Quarter: 2012Q4

REPORT INFORMATION
  Report Type: Spontaneous
  Country: ES (occurrence: None)
  Receive Date: 20121102
  Receipt Date: 20121114
  Transmission Date: 20130627
  Serious: Yes (Other)
  Sender: FDA-Public Use
  Company Number: ES-1194892

PATIENT
  Sex: Male

DRUGS (1)
  1. NEVANAC [Suspect]
     Indication: CATARACT OPERATION
     Route: 047

REACTIONS (1)
  - Blindness transient [None]
